FAERS Safety Report 4676106-9 (Version None)
Quarter: 2005Q2

REPORT INFORMATION
  Report Type: 
  Country: None (occurrence: None)
  Receive Date: 20050527
  Receipt Date: 20050329
  Transmission Date: 20051028
  Serious: No
  Sender: FDA-Public Use
  Company Number: US-GLAXOSMITHKLINE-A0551734A

PATIENT
  Age: 71 Year
  Sex: Female

DRUGS (13)
  1. WELLBUTRIN [Suspect]
     Indication: DEPRESSION
     Dosage: 150MG PER DAY
     Route: 048
     Dates: start: 20050323
  2. ASPIRIN [Concomitant]
  3. PREMARIN [Concomitant]
  4. NEXIUM [Concomitant]
  5. PLAVIX [Concomitant]
  6. SYNTHROID [Concomitant]
  7. AVALIDE [Concomitant]
  8. DOXYCYCLINE [Concomitant]
  9. RESTORIL [Concomitant]
  10. VALIUM [Concomitant]
  11. MIACALCIN [Concomitant]
  12. VITAMIN [Concomitant]
  13. CLONIDINE [Concomitant]

REACTIONS (3)
  - BLOOD PRESSURE INCREASED [None]
  - HEADACHE [None]
  - HEART RATE INCREASED [None]
